FAERS Safety Report 6094537-X (Version None)
Quarter: 2009Q1

REPORT INFORMATION
  Report Type: 
  Country: None (occurrence: None)
  Receive Date: 20090226
  Receipt Date: 20090224
  Transmission Date: 20090719
  Serious: Yes (Hospitalization, Other)
  Sender: FDA-Public Use
  Company Number: US-ROXANE LABORATORIES, INC.-2009-RO-00187RO

PATIENT
  Age: 20 Year
  Sex: Male

DRUGS (6)
  1. LITHIUM CARBONATE [Suspect]
     Indication: BIPOLAR I DISORDER
     Dosage: 450MG
  2. LITHIUM CARBONATE [Suspect]
     Dosage: 900MG
  3. LITHIUM CARBONATE [Suspect]
     Dosage: 1200MG
  4. OLANZAPINE [Suspect]
     Indication: BIPOLAR I DISORDER
  5. OLANZAPINE [Suspect]
     Dosage: 450MG
  6. QUETIAPINE FUMARATE [Suspect]
     Indication: MAJOR DEPRESSION
     Dosage: 600MG

REACTIONS (5)
  - GRAND MAL CONVULSION [None]
  - MAJOR DEPRESSION [None]
  - NEUROTOXICITY [None]
  - SUICIDE ATTEMPT [None]
  - THERAPEUTIC AGENT TOXICITY [None]
